FAERS Safety Report 17075768 (Version 1)
Quarter: 2019Q4

REPORT INFORMATION
  Report Type: Spontaneous
  Country: US (occurrence: US)
  Receive Date: 20191125
  Receipt Date: 20191125
  Transmission Date: 20200122
  Serious: No
  Sender: FDA-Public Use
  Company Number: None

PATIENT
  Age: 53 Year
  Sex: Female
  Weight: 54 kg

DRUGS (11)
  1. MAGNESIUM 400MG [Concomitant]
     Active Substance: MAGNESIUM
  2. E 180 [Concomitant]
  3. GARLIC 1000 [Concomitant]
  4. C 1000 (ASCORBIC ACID) [Concomitant]
     Active Substance: ASCORBIC ACID
  5. FOLIC ACID 400 MCG MAJOR [Concomitant]
     Active Substance: FOLIC ACID
  6. KERATIN 250 [Concomitant]
  7. SYNTHROID [Concomitant]
     Active Substance: LEVOTHYROXINE SODIUM
  8. CO Q 10  100 [Concomitant]
  9. B12 2000 [Concomitant]
  10. AJOVY [Suspect]
     Active Substance: FREMANEZUMAB-VFRM
     Indication: MIGRAINE PROPHYLAXIS
     Dosage: ?          QUANTITY:1 INJECTION(S);OTHER FREQUENCY:MONTHLY;?
     Route: 058
     Dates: start: 20191014, end: 20191114
  11. BIOTIN 5000 [Concomitant]

REACTIONS (1)
  - Alopecia [None]

NARRATIVE: CASE EVENT DATE: 20191125
